FAERS Safety Report 9654712 (Version 3)
Quarter: 2013Q4

REPORT INFORMATION
  Report Type: Spontaneous
  Country: BR (occurrence: BR)
  Receive Date: 20131029
  Receipt Date: 20131230
  Transmission Date: 20140711
  Serious: Yes (Other)
  Sender: FDA-Public Use
  Company Number: BR-BRISTOL-MYERS SQUIBB COMPANY-19610385

PATIENT
  Age: 66 Year
  Sex: Female
  Weight: 61 kg

DRUGS (5)
  1. BARACLUDE TABS 0.5 MG [Suspect]
     Indication: HEPATITIS B
     Dosage: LAST DOSE :26NOV2013
     Route: 048
     Dates: start: 201111
  2. OMEPRAZOLE [Concomitant]
     Indication: GASTRIC DISORDER
  3. PANTOPRAZOLE [Concomitant]
     Indication: GASTRIC DISORDER
  4. RANITIDINE [Concomitant]
     Indication: MALAISE
  5. CALCIUM [Concomitant]

REACTIONS (18)
  - Intestinal polyp [Unknown]
  - Amnesia [Unknown]
  - Gastric disorder [Unknown]
  - Weight decreased [Unknown]
  - Malaise [Unknown]
  - Abdominal pain [Unknown]
  - Dyspepsia [Unknown]
  - Pain in extremity [Unknown]
  - Blood calcium decreased [Unknown]
  - Hyperhidrosis [Unknown]
  - Incorrect dose administered [Unknown]
  - Dizziness [Unknown]
  - Disturbance in attention [Unknown]
  - Fatigue [Unknown]
  - Headache [Unknown]
  - Drug dose omission [Unknown]
  - Tremor [Unknown]
  - Feeling abnormal [Unknown]
